FAERS Safety Report 8410877 (Version 2)
Quarter: 2013Q2

REPORT INFORMATION
  Report Type: Spontaneous
  Country: US (occurrence: None)
  Receive Date: 20111227
  Receipt Date: 20120426
  Transmission Date: 20140414
  Serious: No
  Sender: FDA-Public Use
  Company Number: PHEH2011US06353

PATIENT
  Sex: Female

DRUGS (12)
  1. GILENYA [Suspect]
     Indication: MULTIPLE SCLEROSIS
     Route: 048
  2. PROVISUAL [Concomitant]
  3. TOPAMAX (TOPIRAMATE) [Concomitant]
  4. VITAMIN E (TOCOPHEROL) [Concomitant]
  5. ESTRADIOL (ESTRADIOL) [Concomitant]
  6. IMITREX (SUMATRIPTIN SUCCINATE) [Concomitant]
  7. LEVOTHYRXINE (LEVOTHROXINE) [Concomitant]
  8. TRAZODONE (TRAZODONE) [Concomitant]
  9. ZOLPIDEM (ZOLPIDEM) [Concomitant]
  10. EXCEDRINE (CAFFEINE, PARACETAMOL) [Concomitant]
  11. EQUATE (ACETYLSALICYLIC ACID) (ACETYLSALICYLIC ACID) [Concomitant]
  12. REBIF (INTERFERON BETA -1A) [Concomitant]

REACTIONS (2)
  - VISUAL IMPAIRMENT [None]
  - HEADACHE [None]
